FAERS Safety Report 17171847 (Version 1)
Quarter: 2019Q4

REPORT INFORMATION
  Report Type: Spontaneous
  Country: US (occurrence: US)
  Receive Date: 20191126
  Receipt Date: 20191126
  Transmission Date: 20200122
  Serious: No
  Sender: FDA-Public Use
  Company Number: None

PATIENT
  Age: 49 Year
  Sex: Male
  Weight: 128.8 kg

DRUGS (3)
  1. DEXAMETHASONE. [Suspect]
     Active Substance: DEXAMETHASONE
     Dates: end: 20191122
  2. DARATUMUMAB [Suspect]
     Active Substance: DARATUMUMAB
     Dates: end: 20191115
  3. LENALIDOMIDE  (CC-5013) [Suspect]
     Active Substance: LENALIDOMIDE
     Dates: end: 20191121

REACTIONS (5)
  - Myalgia [None]
  - Bedridden [None]
  - Fatigue [None]
  - Loss of personal independence in daily activities [None]
  - Pain of skin [None]

NARRATIVE: CASE EVENT DATE: 20191122
